FAERS Safety Report 4720991-9 (Version None)
Quarter: 2005Q3

REPORT INFORMATION
  Report Type: 
  Country: None (occurrence: None)
  Receive Date: 20050720
  Receipt Date: 20050429
  Transmission Date: 20060218
  Serious: Yes (Other)
  Sender: FDA-Public Use
  Company Number: 2005069334

PATIENT
  Sex: Female

DRUGS (2)
  1. DEPO-PROVERA [Suspect]
     Indication: ILL-DEFINED DISORDER
     Dosage: INTRAMUSCULAR
     Route: 030
     Dates: start: 20040701, end: 20040701
  2. CARBIMAZOLE (CARBIMAZOLE) [Concomitant]

REACTIONS (2)
  - CHOLELITHIASIS [None]
  - JAUNDICE [None]
